FAERS Safety Report 25276888 (Version 2)
Quarter: 2025Q2

REPORT INFORMATION
  Report Type: Spontaneous
  Country: US (occurrence: US)
  Receive Date: 20250507
  Receipt Date: 20250516
  Transmission Date: 20250716
  Serious: Yes (Hospitalization)
  Sender: TEVA
  Company Number: US-TEVA-VS-3327404

PATIENT
  Age: 80 Year
  Sex: Female

DRUGS (1)
  1. PANTOPRAZOLE [Suspect]
     Active Substance: PANTOPRAZOLE
     Indication: Product used for unknown indication
     Route: 065

REACTIONS (5)
  - Gastric pH increased [Recovering/Resolving]
  - Flatulence [Recovering/Resolving]
  - Gastric perforation [Recovering/Resolving]
  - Overgrowth bacterial [Recovering/Resolving]
  - Gastrointestinal disorder [Recovering/Resolving]
